FAERS Safety Report 8131476-4 (Version None)
Quarter: 2012Q1

REPORT INFORMATION
  Report Type: 
  Country: None (occurrence: None)
  Receive Date: 20120213
  Receipt Date: 20120204
  Transmission Date: 20120608
  Serious: Yes (Hospitalization)
  Sender: FDA-Public Use
  Company Number: US-BAYER-2011-091924

PATIENT
  Age: 28 Year
  Sex: Female
  Weight: 58.957 kg

DRUGS (3)
  1. SEASONIQUE [Concomitant]
     Dosage: UNK
     Dates: start: 20080601, end: 20080827
  2. YASMIN [Suspect]
     Indication: CONTRACEPTION
     Dosage: UNK
     Dates: start: 20060511, end: 20080118
  3. YAZ [Suspect]
     Indication: CONTRACEPTION
     Dosage: UNK
     Dates: start: 20080827

REACTIONS (4)
  - BILE DUCT STONE [None]
  - CHOLELITHIASIS [None]
  - GALLBLADDER DISORDER [None]
  - INJURY [None]
